FAERS Safety Report 9241480 (Version 1)
Quarter: 2013Q2

REPORT INFORMATION
  Report Type: Spontaneous
  Country: US (occurrence: US)
  Receive Date: 20130418
  Receipt Date: 20130418
  Transmission Date: 20140414
  Serious: No
  Sender: FDA-Public Use
  Company Number: US-SANOFI-AVENTIS-2013SA000474

PATIENT
  Sex: Male

DRUGS (1)
  1. LOVENOX [Suspect]
     Dosage: DOSE:100 MILLIGRAM(S)/MILLILITRE
     Route: 051

REACTIONS (1)
  - Drug dose omission [Recovered/Resolved]
